FAERS Safety Report 7474677-0 (Version None)
Quarter: 2011Q2

REPORT INFORMATION
  Report Type: 
  Country: None (occurrence: None)
  Receive Date: 20110505
  Receipt Date: 20110421
  Transmission Date: 20111010
  Serious: Yes (Hospitalization, Other)
  Sender: FDA-Public Use
  Company Number: 030425

PATIENT
  Age: 82 Year
  Sex: Male

DRUGS (3)
  1. VALPROATE SODIUM [Concomitant]
  2. KEPPRA [Suspect]
     Indication: CONVULSION
     Dosage: (ORAL)
     Route: 048
  3. CLOBAZAM (CLOBAZAM) [Suspect]
     Dosage: (ORAL)
     Route: 048

REACTIONS (3)
  - CONVULSION [None]
  - CONFUSIONAL STATE [None]
  - DELIRIUM [None]
